FAERS Safety Report 15884483 (Version 3)
Quarter: 2020Q1

REPORT INFORMATION
  Report Type: Spontaneous
  Country: JP (occurrence: JP)
  Receive Date: 20190129
  Receipt Date: 20200121
  Transmission Date: 20200409
  Serious: Yes (Death, Life-Threatening, Hospitalization, Other)
  Sender: FDA-Public Use
  Company Number: JP-BRISTOL-MYERS SQUIBB COMPANY-BMS-2019-007708

PATIENT
  Age: 87 Year
  Sex: Female
  Weight: 36 kg

DRUGS (5)
  1. COCARL [Concomitant]
     Active Substance: ACETAMINOPHEN
     Indication: LIP AND/OR ORAL CAVITY CANCER
     Route: 065
  2. DALACIN C [CLINDAMYCIN PHOSPHATE] [Concomitant]
     Indication: WOUND INFECTION
     Dosage: 150 MILLIGRAM, Q8H
     Route: 048
     Dates: start: 20181204
  3. OPDIVO [Suspect]
     Active Substance: NIVOLUMAB
     Indication: HEAD AND NECK CANCER
     Dosage: 240 MILLIGRAM
     Route: 041
     Dates: start: 20181204, end: 20181204
  4. VONOPRAZAN FUMARATE [Concomitant]
     Active Substance: VONOPRAZAN FUMURATE
     Indication: PRODUCT USED FOR UNKNOWN INDICATION
     Dosage: 10 MILLIGRAM, QD
     Route: 048
  5. COCARL [Concomitant]
     Active Substance: ACETAMINOPHEN
     Indication: LIP NEOPLASM MALIGNANT STAGE UNSPECIFIED
     Dosage: 800 MILLIGRAM, Q6H
     Route: 048
     Dates: start: 201810

REACTIONS (3)
  - Cholangitis acute [Fatal]
  - Hepatic function abnormal [Not Recovered/Not Resolved]
  - Hyperbilirubinaemia [Not Recovered/Not Resolved]

NARRATIVE: CASE EVENT DATE: 20181225
